FAERS Safety Report 19156894 (Version 16)
Quarter: 2022Q2

REPORT INFORMATION
  Report Type: Spontaneous
  Country: GB (occurrence: GB)
  Receive Date: 20210420
  Receipt Date: 20220429
  Transmission Date: 20220721
  Serious: Yes (Other)
  Sender: FDA-Public Use
  Company Number: GB-ALEXION-A202013933

PATIENT
  Sex: Male

DRUGS (18)
  1. RAMIPRIL [Suspect]
     Active Substance: RAMIPRIL
     Indication: Hypertension
     Dosage: 2.5 MILLIGRAM
     Route: 065
  2. RAMIPRIL [Suspect]
     Active Substance: RAMIPRIL
     Dosage: 5 MILLIGRAM
     Route: 065
     Dates: start: 202101
  3. SOLIRIS [Suspect]
     Active Substance: ECULIZUMAB
     Indication: Atypical haemolytic uraemic syndrome
     Dosage: UNK
     Route: 065
     Dates: start: 201703
  4. SOLIRIS [Suspect]
     Active Substance: ECULIZUMAB
     Dosage: 1200 MILLIGRAM, EVERY TWO WEEKS
     Route: 042
     Dates: start: 20190821
  5. CLEMIZOLE PENICILLIN [Concomitant]
     Active Substance: CLEMIZOLE PENICILLIN
     Indication: Prophylaxis
     Dosage: 1000 MILLIGRAM, ONCE A DAY
     Route: 065
  6. CLEMIZOLE PENICILLIN [Concomitant]
     Active Substance: CLEMIZOLE PENICILLIN
     Dosage: 2 DOSAGE FORM, ONCE A DAY
     Route: 065
  7. CLEMIZOLE PENICILLIN [Concomitant]
     Active Substance: CLEMIZOLE PENICILLIN
     Dosage: 4 DOSAGE FORM, ONCE A DAY
     Route: 065
  8. CLEMIZOLE PENICILLIN [Concomitant]
     Active Substance: CLEMIZOLE PENICILLIN
     Dosage: 500 MILLIGRAM, ONCE A DAY
     Route: 065
  9. CLEMIZOLE PENICILLIN [Concomitant]
     Active Substance: CLEMIZOLE PENICILLIN
     Dosage: 100 MILLIGRAM, ONCE A DAY
     Route: 065
  10. PENICILLIN [Concomitant]
     Active Substance: PENICILLIN
     Indication: Prophylaxis
     Dosage: 500 MILLIGRAM, TWO TIMES A DAY
     Route: 065
  11. PENICILLIN [Concomitant]
     Active Substance: PENICILLIN
     Dosage: 100 MILLIGRAM, ONCE A DAY
     Route: 065
  12. PENICILLIN [Concomitant]
     Active Substance: PENICILLIN
     Dosage: 4 DOSAGE FORM, ONCE A DAY (2 DF, BID)
     Route: 065
  13. PENICILLIN [Concomitant]
     Active Substance: PENICILLIN
     Dosage: 1000 MILLIGRAM, ONCE A DAY
     Route: 065
  14. PENICILLIN [Concomitant]
     Active Substance: PENICILLIN
     Dosage: UNK, TWO TIMES A DAY  (DOSE 2)
     Route: 065
  15. PENICILLIN G [Concomitant]
     Active Substance: PENICILLIN G
     Indication: Prophylaxis
     Dosage: 1000 MILLIGRAM, ONCE A DAY(500 MG, BID )
     Route: 065
  16. PENICILLIN G [Concomitant]
     Active Substance: PENICILLIN G
     Dosage: 500 MILLIGRAM, ONCE A DAY
     Route: 065
  17. PENICILLIN G [Concomitant]
     Active Substance: PENICILLIN G
     Dosage: 4 DOSAGE FORM, ONCE A DAY
     Route: 065
  18. PENICILLIN G [Concomitant]
     Active Substance: PENICILLIN G
     Dosage: 2 UNK, ONCE A DAY
     Route: 065

REACTIONS (7)
  - Blood pressure increased [Not Recovered/Not Resolved]
  - Renal impairment [Not Recovered/Not Resolved]
  - Hypertension [Recovering/Resolving]
  - Fatigue [Not Recovered/Not Resolved]
  - Poor venous access [Unknown]
  - Cough [Recovering/Resolving]
  - Product dose omission issue [Unknown]
